FAERS Safety Report 6616951-3 (Version None)
Quarter: 2010Q1

REPORT INFORMATION
  Report Type: 
  Country: None (occurrence: None)
  Receive Date: 20100301
  Receipt Date: 20100216
  Transmission Date: 20100710
  Serious: Yes (Death, Hospitalization)
  Sender: FDA-Public Use
  Company Number: 007114

PATIENT
  Age: 37 Year
  Sex: Male
  Weight: 80 kg

DRUGS (3)
  1. VIMPAT [Suspect]
     Indication: PARTIAL SEIZURES
     Dosage: (100 MG BID)
     Dates: start: 20091022, end: 20100116
  2. CONVULEX /00228501/ (CONVULEX) (NOT SPECIFIED) [Suspect]
     Dosage: (1500 MG 6X/DAY)
  3. LAMOTRIGIN (LAMOTRIGIN RTB) (NOT SPECIFIED) [Suspect]
     Dosage: (100 MG BID)

REACTIONS (10)
  - ARRHYTHMIA [None]
  - BLOOD PRESSURE SYSTOLIC DECREASED [None]
  - CARDIAC ARREST [None]
  - CARDIOMEGALY [None]
  - EPILEPSY [None]
  - PNEUMONIA [None]
  - PULMONARY OEDEMA [None]
  - SUDDEN CARDIAC DEATH [None]
  - TRACHEOBRONCHITIS [None]
  - VENTRICULAR FIBRILLATION [None]
